FAERS Safety Report 6650035-3 (Version None)
Quarter: 2010Q1

REPORT INFORMATION
  Report Type: 
  Country: None (occurrence: None)
  Receive Date: 20100325
  Receipt Date: 20100319
  Transmission Date: 20100710
  Serious: Yes (Death)
  Sender: FDA-Public Use
  Company Number: US-CELGENEUS-163-21880-10030827

PATIENT
  Sex: Male

DRUGS (2)
  1. REVLIMID [Suspect]
     Indication: MYELODYSPLASTIC SYNDROME
     Route: 048
     Dates: start: 20090801
  2. REVLIMID [Suspect]
     Route: 048
     Dates: start: 20090301, end: 20090601

REACTIONS (5)
  - CARDIAC FAILURE CONGESTIVE [None]
  - DIABETES MELLITUS [None]
  - GENERAL PHYSICAL CONDITION ABNORMAL [None]
  - NEOPLASM PROGRESSION [None]
  - PANCYTOPENIA [None]
